FAERS Safety Report 21235768 (Version 1)
Quarter: 2022Q3

REPORT INFORMATION
  Report Type: Spontaneous
  Country: US (occurrence: US)
  Receive Date: 20220821
  Receipt Date: 20220821
  Transmission Date: 20221027
  Serious: No
  Sender: FDA-Public Use
  Company Number: US-SA-SAC20220817002199

PATIENT
  Age: 60 Year
  Sex: Female

DRUGS (20)
  1. AUBAGIO [Suspect]
     Active Substance: TERIFLUNOMIDE
     Indication: Gait spastic
     Dosage: 14 MG, QD
     Route: 048
     Dates: start: 20150115
  2. ANASTROZOLE [Concomitant]
     Active Substance: ANASTROZOLE
  3. DONEPEZIL HYDROCHLORIDE [Concomitant]
     Active Substance: DONEPEZIL HYDROCHLORIDE
  4. DULOXETINE [Concomitant]
     Active Substance: DULOXETINE
  5. MYRBETRIQ [Concomitant]
     Active Substance: MIRABEGRON
  6. QUETIAPINE [Concomitant]
     Active Substance: QUETIAPINE
  7. AMOXICILLIN [Concomitant]
     Active Substance: AMOXICILLIN
  8. FLUCONAZOLE [Concomitant]
     Active Substance: FLUCONAZOLE
  9. ZOSTAVAX [Concomitant]
     Active Substance: VARICELLA-ZOSTER VIRUS STRAIN OKA/MERCK LIVE ANTIGEN
  10. PNEUMOVAX 23 [Concomitant]
     Active Substance: PNEUMOCOCCAL VACCINE, POLYVALENT 23
     Dosage: DOSE: 23/5
  11. IBUPROFEN [Concomitant]
     Active Substance: IBUPROFEN
  12. AMANTADINE HYDROCHLORIDE [Concomitant]
     Active Substance: AMANTADINE HYDROCHLORIDE
  13. CYMBALTA [Concomitant]
     Active Substance: DULOXETINE HYDROCHLORIDE
  14. ESTRADIOL [Concomitant]
     Active Substance: ESTRADIOL
  15. NEXIUM I.V. [Concomitant]
     Active Substance: ESOMEPRAZOLE SODIUM
  16. PREDNISONE [Concomitant]
     Active Substance: PREDNISONE
  17. VESICARE [Concomitant]
     Active Substance: SOLIFENACIN SUCCINATE
  18. LISINOPRIL AND HYDROCHLOROTHIAZIDE [Concomitant]
     Active Substance: HYDROCHLOROTHIAZIDE\LISINOPRIL
  19. ACLOFEN [Concomitant]
  20. DETROL LA [Concomitant]
     Active Substance: TOLTERODINE TARTRATE

REACTIONS (1)
  - Product use in unapproved indication [Unknown]

NARRATIVE: CASE EVENT DATE: 20150115
